FAERS Safety Report 9164431 (Version 2)
Quarter: 2013Q2

REPORT INFORMATION
  Report Type: Spontaneous
  Country: US (occurrence: None)
  Receive Date: 20130221
  Receipt Date: 20130408
  Transmission Date: 20140414
  Serious: Yes (Other)
  Sender: FDA-Public Use
  Company Number: COL_13120_2013

PATIENT
  Sex: Female

DRUGS (3)
  1. COLGATE TOTAL TOOTHPASTE [Suspect]
     Indication: DENTAL CARIES
     Dosage: (COVERED WHOLE HEAD OF TOOTHBRUSH/BID/ORAL)?
     Dates: start: 2000, end: 2000
  2. COLGATE TOTAL TOOTHPASTE [Suspect]
     Indication: DENTAL PLAQUE
     Dosage: (COVERED WHOLE HEAD OF TOOTHBRUSH/BID/ORAL)?
     Dates: start: 2000, end: 2000
  3. COLGATE TOTAL TOOTHPASTE [Suspect]
     Indication: GINGIVITIS
     Dosage: (COVERED WHOLE HEAD OF TOOTHBRUSH/BID/ORAL)?
     Dates: start: 2000, end: 2000

REACTIONS (2)
  - Hypersensitivity [None]
  - Dysarthria [None]
